FAERS Safety Report 8578641 (Version 5)
Quarter: 2012Q4

REPORT INFORMATION
  Report Type: 
  Country: US (occurrence: US)
  Receive Date: 20120524
  Receipt Date: 20121210
  Transmission Date: 20130627
  Serious: Yes (Hospitalization)
  Sender: FDA-Public Use
  Company Number: US-GLAXOSMITHKLINE-A0933124A

PATIENT
  Age: 61 Year
  Sex: Male

DRUGS (2)
  1. AVANDAMET [Suspect]
     Indication: DIABETES MELLITUS
     Route: 048
     Dates: start: 20030915, end: 2007
  2. ROSIGLITAZONE MALEATE [Suspect]
     Indication: DIABETES MELLITUS
     Dosage: 8MG Per day
     Route: 048
     Dates: start: 2001, end: 2008

REACTIONS (4)
  - Cardiac failure congestive [Not Recovered/Not Resolved]
  - Cardiac valve disease [Unknown]
  - Coronary artery bypass [Unknown]
  - Stent placement [Unknown]
